FAERS Safety Report 11462276 (Version 1)
Quarter: 2015Q3

REPORT INFORMATION
  Report Type: Spontaneous
  Country: US (occurrence: US)
  Receive Date: 20150831
  Receipt Date: 20150831
  Transmission Date: 20151125
  Serious: No
  Sender: FDA-Public Use
  Company Number: US-ELI_LILLY_AND_COMPANY-US201010006524

PATIENT
  Sex: Female

DRUGS (6)
  1. LEVOTHYROXINE. [Concomitant]
     Active Substance: LEVOTHYROXINE
  2. ALPRAZOLAM. [Concomitant]
     Active Substance: ALPRAZOLAM
  3. SOTALOL. [Concomitant]
     Active Substance: SOTALOL
  4. SIMVASTATIN. [Concomitant]
     Active Substance: SIMVASTATIN
  5. ZOLOFT [Concomitant]
     Active Substance: SERTRALINE HYDROCHLORIDE
     Indication: DEPRESSION
  6. CYMBALTA [Suspect]
     Active Substance: DULOXETINE HYDROCHLORIDE
     Indication: DEPRESSION
     Dosage: 60 MG, DAILY (1/D)
     Dates: start: 200904, end: 201010

REACTIONS (7)
  - Tachyphrenia [Not Recovered/Not Resolved]
  - Restlessness [Not Recovered/Not Resolved]
  - Suicidal ideation [Recovered/Resolved]
  - Irritability [Not Recovered/Not Resolved]
  - Agitation [Not Recovered/Not Resolved]
  - Hallucination, auditory [Recovered/Resolved]
  - Drug withdrawal syndrome [Not Recovered/Not Resolved]
